FAERS Safety Report 4663871-X (Version None)
Quarter: 2005Q2

REPORT INFORMATION
  Report Type: 
  Country: None (occurrence: None)
  Receive Date: 20050516
  Receipt Date: 20050502
  Transmission Date: 20051028
  Serious: Yes (Hospitalization, Other)
  Sender: FDA-Public Use
  Company Number: 2005069676

PATIENT
  Age: 38 Year
  Sex: Female
  Weight: 69.8539 kg

DRUGS (6)
  1. GEODON [Suspect]
     Indication: HALLUCINATION, AUDITORY
     Dosage: 80 MG (80 MG, 1 IN 1 D)
     Dates: start: 20050401
  2. SUDAFED S.A. [Suspect]
     Indication: NASOPHARYNGITIS
     Dates: start: 20050401
  3. METFORMIN HCL [Suspect]
     Indication: ILL-DEFINED DISORDER
     Dates: start: 20050303
  4. BUPROPION HYDROCHLORIDE [Suspect]
     Indication: ILL-DEFINED DISORDER
  5. OLANZAPINE (OLANZAPINE) [Concomitant]
  6. MORPHINE [Concomitant]

REACTIONS (9)
  - COMA [None]
  - FATIGUE [None]
  - HEMIPLEGIA [None]
  - LOSS OF CONSCIOUSNESS [None]
  - METABOLIC ENCEPHALOPATHY [None]
  - NASOPHARYNGITIS [None]
  - PNEUMONIA ASPIRATION [None]
  - UNRESPONSIVE TO PAIN STIMULI [None]
  - VOMITING [None]
